FAERS Safety Report 13449538 (Version 1)
Quarter: 2017Q2

REPORT INFORMATION
  Report Type: Report from Study
  Country: None (occurrence: DE)
  Receive Date: 20170417
  Receipt Date: 20170417
  Transmission Date: 20170830
  Serious: Yes (Hospitalization)
  Sender: FDA-Public Use
  Company Number: DE-ABBVIE-17P-062-1941701-00

PATIENT
  Age: 69 Year
  Sex: Female

DRUGS (3)
  1. AZILECT (NON-ABBVIE) [Concomitant]
     Indication: PRODUCT USED FOR UNKNOWN INDICATION
  2. DUODOPA [Suspect]
     Active Substance: CARBIDOPA\LEVODOPA
     Indication: PARKINSON^S DISEASE
     Dosage: MD 1.0ML / CRD 3.5ML / CRN 3.0ML/H / ED 1.5ML
     Route: 050
     Dates: start: 20120302, end: 20170402
  3. CLOZAPIN (NON-ABBVIE) [Concomitant]
     Indication: PRODUCT USED FOR UNKNOWN INDICATION

REACTIONS (2)
  - Acute stress disorder [Recovering/Resolving]
  - Medical device removal [Not Recovered/Not Resolved]

NARRATIVE: CASE EVENT DATE: 2017
